FAERS Safety Report 6688084-1 (Version None)
Quarter: 2010Q2

REPORT INFORMATION
  Report Type: 
  Country: None (occurrence: None)
  Receive Date: 20100420
  Receipt Date: 20100412
  Transmission Date: 20101027
  Serious: Yes (Hospitalization, Other)
  Sender: FDA-Public Use
  Company Number: US-ASTRAZENECA-2009UW18766

PATIENT
  Age: 14881 Day
  Sex: Female

DRUGS (9)
  1. SEROQUEL [Suspect]
     Dosage: 100-300 MG DAILY
     Route: 048
     Dates: start: 20000310
  2. EFFEXOR [Concomitant]
  3. DEPAKOTE [Concomitant]
  4. LISINOPRIL [Concomitant]
  5. CLONIDINE [Concomitant]
     Dosage: 0.2 BID
  6. ACTOS [Concomitant]
     Dosage: 45 DAILY
  7. NORVASC [Concomitant]
  8. MONOPRIL [Concomitant]
  9. CELEXA [Concomitant]

REACTIONS (3)
  - BLOOD GLUCOSE DECREASED [None]
  - DIABETES MELLITUS [None]
  - NEUROPATHY PERIPHERAL [None]
